FAERS Safety Report 8780486 (Version 1)
Quarter: 2012Q4

REPORT INFORMATION
  Report Type: Spontaneous
  Country: US (occurrence: None)
  Receive Date: 20120906
  Receipt Date: 20120906
  Transmission Date: 20130627
  Serious: Yes (Other)
  Sender: FDA-Public Use
  Company Number: None

PATIENT
  Age: 46 Year
  Sex: Female
  Weight: 67.59 kg

DRUGS (1)
  1. MEDROXYPROGESTERONE ACETATE INJECTABLE SUSPENSION USP GREENSTONE BRAND [Suspect]
     Dosage: every three months
     Dates: start: 20120624, end: 20120926

REACTIONS (6)
  - Metrorrhagia [None]
  - Headache [None]
  - Nausea [None]
  - Back pain [None]
  - Product quality issue [None]
  - Vaginal haemorrhage [None]
